FAERS Safety Report 8796063 (Version 3)
Quarter: 2015Q1

REPORT INFORMATION
  Report Type: Report from Study
  Country: US (occurrence: US)
  Receive Date: 20120920
  Receipt Date: 20150324
  Transmission Date: 20150721
  Serious: Yes (Death)
  Sender: FDA-Public Use
  Company Number: US-ROCHE-1125657

PATIENT
  Age: 42 Year
  Sex: Male
  Weight: 77 kg

DRUGS (9)
  1. IRINOTECAN [Concomitant]
     Active Substance: IRINOTECAN
     Route: 042
  2. ALOXI [Concomitant]
     Active Substance: PALONOSETRON HYDROCHLORIDE
     Route: 042
  3. AVASTIN [Suspect]
     Active Substance: BEVACIZUMAB
     Indication: COLON CANCER
     Route: 042
     Dates: start: 20060831
  4. AVASTIN [Suspect]
     Active Substance: BEVACIZUMAB
     Route: 042
  5. IRINOTECAN [Concomitant]
     Active Substance: IRINOTECAN
     Route: 042
  6. FLUOROURACIL. [Concomitant]
     Active Substance: FLUOROURACIL
     Route: 042
  7. FLUOROURACIL. [Concomitant]
     Active Substance: FLUOROURACIL
     Route: 042
  8. AVASTIN [Suspect]
     Active Substance: BEVACIZUMAB
     Route: 042
  9. LEUCOVORIN [Concomitant]
     Active Substance: LEUCOVORIN
     Route: 042

REACTIONS (3)
  - Death [Fatal]
  - Disease progression [Unknown]
  - Nausea [Unknown]

NARRATIVE: CASE EVENT DATE: 20061110
